FAERS Safety Report 13397005 (Version 12)
Quarter: 2017Q4

REPORT INFORMATION
  Report Type: Report from Study
  Country: US (occurrence: US)
  Receive Date: 20170403
  Receipt Date: 20171127
  Transmission Date: 20180320
  Serious: Yes (Hospitalization, Other)
  Sender: FDA-Public Use
  Company Number: US-BAYER-2017-030698

PATIENT
  Age: 70 Year
  Sex: Female
  Weight: 78.01 kg

DRUGS (14)
  1. ADEMPAS [Suspect]
     Active Substance: RIOCIGUAT
     Indication: PULMONARY ARTERIAL HYPERTENSION
     Dosage: 1 MG, TID
     Route: 048
  2. ADEMPAS [Suspect]
     Active Substance: RIOCIGUAT
     Indication: PULMONARY ARTERIAL HYPERTENSION
     Dosage: 2.5 MG, TID
     Route: 048
  3. UPTRAVI [Suspect]
     Active Substance: SELEXIPAG
     Dosage: 800 ?G, BID
     Dates: start: 20170323
  4. ADEMPAS [Suspect]
     Active Substance: RIOCIGUAT
     Indication: PULMONARY ARTERIAL HYPERTENSION
     Dosage: UNK
     Dates: start: 20170126
  5. ADEMPAS [Suspect]
     Active Substance: RIOCIGUAT
     Indication: PULMONARY ARTERIAL HYPERTENSION
     Dosage: 2.5 MG, TID
  6. ADEMPAS [Suspect]
     Active Substance: RIOCIGUAT
     Indication: PULMONARY ARTERIAL HYPERTENSION
     Dosage: UNK
     Dates: start: 20170605
  7. ADEMPAS [Suspect]
     Active Substance: RIOCIGUAT
     Indication: PULMONARY ARTERIAL HYPERTENSION
     Dosage: 1.5 MG, TID
     Route: 048
     Dates: start: 20170220
  8. ADEMPAS [Suspect]
     Active Substance: RIOCIGUAT
     Indication: PULMONARY ARTERIAL HYPERTENSION
     Dosage: 2.5 MG, TID
     Route: 048
  9. ADEMPAS [Suspect]
     Active Substance: RIOCIGUAT
     Indication: PULMONARY ARTERIAL HYPERTENSION
     Dosage: 2.5 MG, TID
     Route: 048
  10. ADEMPAS [Suspect]
     Active Substance: RIOCIGUAT
     Indication: PULMONARY ARTERIAL HYPERTENSION
     Dosage: 2.0 MG, TID
     Route: 048
     Dates: start: 20170318
  11. OPSUMIT [Concomitant]
     Active Substance: MACITENTAN
     Dosage: UNK
  12. UPTRAVI [Suspect]
     Active Substance: SELEXIPAG
     Dosage: 600 ?G, BID
  13. ADEMPAS [Suspect]
     Active Substance: RIOCIGUAT
     Indication: PULMONARY ARTERIAL HYPERTENSION
     Dosage: 2.0 MG, TID
     Route: 048
  14. ADEMPAS [Suspect]
     Active Substance: RIOCIGUAT
     Indication: PULMONARY ARTERIAL HYPERTENSION
     Dosage: 2.5 MG, TID
     Route: 048
     Dates: start: 20170605

REACTIONS (44)
  - Hospitalisation [Recovered/Resolved]
  - Fatigue [Unknown]
  - Oedema [None]
  - Cholelithiasis [Unknown]
  - Anaemia [Unknown]
  - Gastrointestinal disorder [Unknown]
  - Headache [Not Recovered/Not Resolved]
  - Gastrointestinal haemorrhage [Recovered/Resolved]
  - Adverse drug reaction [Unknown]
  - Myalgia [Unknown]
  - Insomnia [Unknown]
  - Productive cough [Unknown]
  - Haemoglobin decreased [Unknown]
  - Diarrhoea haemorrhagic [None]
  - Pneumonia [None]
  - Nausea [Not Recovered/Not Resolved]
  - Chills [Unknown]
  - Dyspnoea exertional [Not Recovered/Not Resolved]
  - Diarrhoea [None]
  - Bronchitis [Not Recovered/Not Resolved]
  - Oxygen saturation decreased [None]
  - Headache [Recovering/Resolving]
  - Headache [Recovered/Resolved]
  - Computerised tomogram abnormal [Unknown]
  - Dyspepsia [Unknown]
  - Nausea [Unknown]
  - Headache [Unknown]
  - Abdominal pain upper [None]
  - Peripheral swelling [Not Recovered/Not Resolved]
  - Oedema peripheral [None]
  - Anaemia [Not Recovered/Not Resolved]
  - Sinusitis [Unknown]
  - Asthenia [None]
  - Pancreatic cyst [None]
  - Drug dose omission [None]
  - Rectal haemorrhage [None]
  - Oxygen therapy [Unknown]
  - Blood count abnormal [Unknown]
  - Pancreatic disorder [None]
  - Nasopharyngitis [Unknown]
  - Abdominal pain upper [Unknown]
  - Arthralgia [Unknown]
  - Headache [None]
  - Platelet count decreased [Not Recovered/Not Resolved]

NARRATIVE: CASE EVENT DATE: 2017
